FAERS Safety Report 20842465 (Version 5)
Quarter: 2023Q2

REPORT INFORMATION
  Report Type: Report from Study
  Country: IN (occurrence: IN)
  Receive Date: 20220518
  Receipt Date: 20230424
  Transmission Date: 20230721
  Serious: Yes (Hospitalization)
  Sender: FDA-Public Use
  Company Number: IN-NOVARTISPH-NVSC2022IN111708

PATIENT
  Age: 57 Year
  Sex: Female

DRUGS (11)
  1. ALPELISIB [Suspect]
     Active Substance: ALPELISIB
     Indication: Breast cancer metastatic
     Dosage: 300 MG, QD
     Route: 048
     Dates: start: 20220422, end: 20220502
  2. ALPELISIB [Suspect]
     Active Substance: ALPELISIB
     Dosage: 300 MG AND 150 MG ON ALTERNATE DAYS
     Route: 048
     Dates: start: 20220503, end: 20220508
  3. ALPELISIB [Suspect]
     Active Substance: ALPELISIB
     Dosage: 150 MG, QD
     Route: 048
     Dates: start: 20220612, end: 20220822
  4. ALPELISIB [Suspect]
     Active Substance: ALPELISIB
     Dosage: 150 MG, QD
     Route: 048
     Dates: start: 20220823, end: 20220919
  5. ALPELISIB [Suspect]
     Active Substance: ALPELISIB
     Dosage: 150 MG, QD
     Route: 048
     Dates: start: 20220920, end: 20221017
  6. ALPELISIB [Suspect]
     Active Substance: ALPELISIB
     Dosage: 150 MG, QD
     Route: 048
     Dates: start: 20221018, end: 20221114
  7. ALPELISIB [Suspect]
     Active Substance: ALPELISIB
     Dosage: 150 MG, BID
     Route: 048
     Dates: start: 20221115, end: 20221212
  8. ALPELISIB [Suspect]
     Active Substance: ALPELISIB
     Dosage: 150 MG, BID
     Route: 048
     Dates: start: 20221213, end: 20230109
  9. ALPELISIB [Suspect]
     Active Substance: ALPELISIB
     Dosage: 150 MG, BID
     Route: 048
     Dates: start: 20230110, end: 20230206
  10. ALPELISIB [Suspect]
     Active Substance: ALPELISIB
     Dosage: 150 MG, BID
     Route: 048
     Dates: start: 20230207, end: 20230306
  11. ALPELISIB [Suspect]
     Active Substance: ALPELISIB
     Dosage: 150 MG, BID
     Route: 048
     Dates: start: 20230307, end: 20230410

REACTIONS (6)
  - Loss of consciousness [Recovered/Resolved]
  - Blood glucose increased [Recovering/Resolving]
  - Feeding disorder [Recovering/Resolving]
  - Fatigue [Recovered/Resolved]
  - Product use issue [Recovered/Resolved]
  - Drug ineffective [Unknown]

NARRATIVE: CASE EVENT DATE: 20220502
